FAERS Safety Report 21518321 (Version 2)
Quarter: 2022Q4

REPORT INFORMATION
  Report Type: Spontaneous
  Country: ES (occurrence: ES)
  Receive Date: 20221028
  Receipt Date: 20221112
  Transmission Date: 20230112
  Serious: Yes (Hospitalization, Other)
  Sender: FDA-Public Use
  Company Number: ES-TAKEDA-2022TUS077477

PATIENT
  Age: 59 Year
  Sex: Female

DRUGS (18)
  1. HYQVIA [Suspect]
     Active Substance: HUMAN IMMUNOGLOBULIN G\HYALURONIDASE RECOMBINANT HUMAN
     Indication: Immunodeficiency common variable
     Dosage: 20 MILLIGRAM, MONTHLY
     Route: 058
     Dates: start: 20201125
  2. LANSOPRAZOLE [Concomitant]
     Active Substance: LANSOPRAZOLE
     Dosage: 30 MILLIGRAM, QD
     Route: 065
  3. NYSTATIN [Concomitant]
     Active Substance: NYSTATIN
     Dosage: 5 MILLIGRAM, TID
     Route: 065
  4. CALCIFEDIOL [Concomitant]
     Active Substance: CALCIFEDIOL
     Dosage: 1 DOSAGE FORM, MONTHLY
     Route: 065
  5. ELIQUIS [Concomitant]
     Active Substance: APIXABAN
     Dosage: 2 MILLIGRAM, Q12H
     Route: 065
  6. ELIQUIS [Concomitant]
     Active Substance: APIXABAN
     Dosage: 5 MILLIGRAM, Q12H
     Route: 065
  7. ATORVASTATIN [Concomitant]
     Active Substance: ATORVASTATIN
     Dosage: 20 MILLIGRAM, QD
     Route: 065
  8. SULFAMETHOXAZOLE\TRIMETHOPRIM [Concomitant]
     Active Substance: SULFAMETHOXAZOLE\TRIMETHOPRIM
     Dosage: UNK
  9. AZITHROMYCIN [Concomitant]
     Active Substance: AZITHROMYCIN
     Dosage: 500 MILLIGRAM, QD
     Route: 065
  10. IBUPROFEN [Concomitant]
     Active Substance: IBUPROFEN
     Dosage: 600 MILLIGRAM, Q12H
     Route: 065
  11. METAMIZOL [Concomitant]
     Active Substance: METAMIZOLE SODIUM
     Dosage: 575 MILLIGRAM, Q12H
     Route: 065
  12. ACETAMINOPHEN [Concomitant]
     Active Substance: ACETAMINOPHEN
     Dosage: 650 MILLIGRAM, Q12H
     Route: 065
  13. ELETRIPTAN HYDROBROMIDE [Concomitant]
     Active Substance: ELETRIPTAN HYDROBROMIDE
     Dosage: 40 MILLIGRAM
     Route: 065
  14. TOPIRAMATE [Concomitant]
     Active Substance: TOPIRAMATE
     Dosage: 50 MILLIGRAM, Q12H
     Route: 065
  15. VENLAFAXINE [Concomitant]
     Active Substance: VENLAFAXINE HYDROCHLORIDE
     Dosage: 75 MILLIGRAM, QD
     Route: 065
  16. BUDESONIDE [Concomitant]
     Active Substance: BUDESONIDE
     Dosage: UNK UNK, BID
     Route: 055
  17. POLARAMINE [Concomitant]
     Active Substance: DEXCHLORPHENIRAMINE MALEATE
     Dosage: 2 MILLIGRAM
     Route: 065
  18. BILASTINE [Concomitant]
     Active Substance: BILASTINE
     Dosage: 20 MILLIGRAM, QD
     Route: 065

REACTIONS (1)
  - Pneumonia [Recovering/Resolving]

NARRATIVE: CASE EVENT DATE: 20221020
